FAERS Safety Report 23532721 (Version 1)
Quarter: 2024Q1

REPORT INFORMATION
  Report Type: Spontaneous
  Country: CO (occurrence: CO)
  Receive Date: 20240216
  Receipt Date: 20240216
  Transmission Date: 20240409
  Serious: Yes (Death, Hospitalization, Other)
  Sender: FDA-Public Use
  Company Number: CO-BAXTER-2024BAX012414

PATIENT
  Age: 68 Year
  Sex: Male
  Weight: 59.8 kg

DRUGS (12)
  1. DIANEAL LOW CALCIUM WITH DEXTROSE [Suspect]
     Active Substance: CALCIUM CHLORIDE\DEXTROSE\MAGNESIUM CHLORIDE\SODIUM CHLORIDE\SODIUM LACTATE
     Indication: Peritoneal dialysis
     Dosage: 2.5 LITERS, 3 BAGS PER DAY
     Route: 033
     Dates: start: 20200601
  2. DIANEAL LOW CALCIUM WITH DEXTROSE [Suspect]
     Active Substance: CALCIUM CHLORIDE\DEXTROSE\MAGNESIUM CHLORIDE\SODIUM CHLORIDE\SODIUM LACTATE
     Indication: Peritoneal dialysis
     Dosage: 2 LITERS, 1 BAG PER DAY
     Route: 033
     Dates: start: 20200601
  3. ALUMINUM HYDROXIDE [Concomitant]
     Active Substance: ALUMINUM HYDROXIDE
     Route: 065
  4. ERYTHROPOIETIN [Concomitant]
     Active Substance: ERYTHROPOIETIN
     Route: 065
  5. NIFEDIPINE [Concomitant]
     Active Substance: NIFEDIPINE
     Route: 065
  6. PRAZOSIN [Concomitant]
     Active Substance: PRAZOSIN
     Route: 065
  7. ATORVASTATIN [Concomitant]
     Active Substance: ATORVASTATIN
     Route: 065
  8. LOSARTAN [Concomitant]
     Active Substance: LOSARTAN
     Route: 065
  9. TRAMADOL [Concomitant]
     Active Substance: TRAMADOL\TRAMADOL HYDROCHLORIDE
     Route: 065
  10. INSULIN GLARGINE [Concomitant]
     Active Substance: INSULIN GLARGINE
     Route: 065
  11. BISACODYL [Concomitant]
     Active Substance: BISACODYL
     Route: 065
  12. LINAGLIPTIN [Concomitant]
     Active Substance: LINAGLIPTIN
     Route: 065

REACTIONS (11)
  - Arteriosclerosis [Fatal]
  - Necrosis [Unknown]
  - Insulin-requiring type 2 diabetes mellitus [Unknown]
  - End stage renal disease [Unknown]
  - Arteriosclerosis [Unknown]
  - Sepsis [Unknown]
  - Diabetic nephropathy [Unknown]
  - Hypertensive nephropathy [Unknown]
  - Diabetic complication [Unknown]
  - Arteriosclerosis [Unknown]
  - Hypertension [Unknown]

NARRATIVE: CASE EVENT DATE: 20231226
